FAERS Safety Report 23477977 (Version 1)
Quarter: 2024Q1

REPORT INFORMATION
  Report Type: Spontaneous
  Country: DE (occurrence: DE)
  Receive Date: 20240204
  Receipt Date: 20240204
  Transmission Date: 20240410
  Serious: Yes (Hospitalization, Other)
  Sender: FDA-Public Use
  Company Number: DE-BAXTER-2024BAX011855

PATIENT
  Age: 35 Year
  Sex: Female

DRUGS (1)
  1. PROPOFOL [Suspect]
     Active Substance: PROPOFOL
     Indication: Anaesthesia
     Dosage: TOTAL DOSE OF 540 MG
     Route: 065

REACTIONS (18)
  - Acute hepatic failure [Recovering/Resolving]
  - Alanine aminotransferase increased [Recovering/Resolving]
  - Coagulation time abnormal [Recovering/Resolving]
  - Jaundice [Recovered/Resolved]
  - Chronic hepatitis [Recovering/Resolving]
  - Cholestasis [Recovering/Resolving]
  - Hepatic steatosis [Recovering/Resolving]
  - Liver injury [Recovering/Resolving]
  - Blood bilirubin increased [Recovered/Resolved]
  - International normalised ratio increased [Recovered/Resolved]
  - Hepatic encephalopathy [Recovered/Resolved]
  - Hepatomegaly [Recovering/Resolving]
  - Ascites [Recovering/Resolving]
  - Increased liver stiffness [Recovering/Resolving]
  - Hepatic fibrosis [Recovering/Resolving]
  - Hepatocellular injury [Recovering/Resolving]
  - Aspartate aminotransferase increased [Recovering/Resolving]
  - Hepatic function abnormal [Recovering/Resolving]
